FAERS Safety Report 25211618 (Version 9)
Quarter: 2025Q3

REPORT INFORMATION
  Report Type: Report from Study
  Country: US (occurrence: US)
  Receive Date: 20250418
  Receipt Date: 20250916
  Transmission Date: 20251021
  Serious: Yes (Hospitalization, Other)
  Sender: TAKEDA
  Company Number: US-TAKEDA-2025TUS037208

PATIENT
  Age: 68 Year
  Sex: Male
  Weight: 75 kg

DRUGS (37)
  1. .ALPHA.1-PROTEINASE INHIBITOR HUMAN [Suspect]
     Active Substance: .ALPHA.1-PROTEINASE INHIBITOR HUMAN
     Indication: Alpha-1 antitrypsin deficiency
     Dosage: 60 MILLIGRAM/KILOGRAM, 1/WEEK
  2. .ALPHA.1-PROTEINASE INHIBITOR HUMAN [Suspect]
     Active Substance: .ALPHA.1-PROTEINASE INHIBITOR HUMAN
  3. EPINEPHRINE [Concomitant]
     Active Substance: EPINEPHRINE
  4. OMEPRAZOLE [Concomitant]
     Active Substance: OMEPRAZOLE
  5. CARVEDILOL [Concomitant]
     Active Substance: CARVEDILOL
  6. TETRAFERRIC TRICITRATE DECAHYDRATE [Concomitant]
     Active Substance: TETRAFERRIC TRICITRATE DECAHYDRATE
  7. MIRALAX [Concomitant]
     Active Substance: POLYETHYLENE GLYCOL 3350
  8. SULFAMETHOXAZOLE AND TRIMETHOPRIM [Concomitant]
     Active Substance: SULFAMETHOXAZOLE\TRIMETHOPRIM
  9. TAMSULOSIN HYDROCHLORIDE [Concomitant]
     Active Substance: TAMSULOSIN HYDROCHLORIDE
  10. HEPARIN [Concomitant]
     Active Substance: HEPARIN SODIUM
  11. SODIUM CHLORIDE [Concomitant]
     Active Substance: SODIUM CHLORIDE
  12. SERTRALINE HYDROCHLORIDE [Concomitant]
     Active Substance: SERTRALINE HYDROCHLORIDE
  13. ALBUTEROL SULFATE [Concomitant]
     Active Substance: ALBUTEROL SULFATE
  14. CLONAZEPAM [Concomitant]
     Active Substance: CLONAZEPAM
  15. FLUTICASONE PROPIONATE AND SALMETEROL [Concomitant]
     Active Substance: FLUTICASONE PROPIONATE\SALMETEROL XINAFOATE
  16. ELIQUIS [Concomitant]
     Active Substance: APIXABAN
  17. NEORAL [Concomitant]
     Active Substance: CYCLOSPORINE
  18. LIDOCAINE [Concomitant]
     Active Substance: LIDOCAINE
  19. NALOXONE HCL [Concomitant]
     Active Substance: NALOXONE HYDROCHLORIDE
  20. ACYCLOVIR [Concomitant]
     Active Substance: ACYCLOVIR
  21. CALCITRIOL [Concomitant]
     Active Substance: CALCITRIOL
  22. OXYGEN [Concomitant]
     Active Substance: OXYGEN
  23. DIPHENHYDRAMINE HYDROCHLORIDE [Concomitant]
     Active Substance: DIPHENHYDRAMINE HYDROCHLORIDE
  24. Nephro vite [Concomitant]
  25. SENNA [Concomitant]
     Active Substance: SENNOSIDES
  26. TRAZODONE HCL [Concomitant]
     Active Substance: TRAZODONE HYDROCHLORIDE
  27. LORATADINE [Concomitant]
     Active Substance: LORATADINE
  28. REGLAN [Concomitant]
     Active Substance: METOCLOPRAMIDE HYDROCHLORIDE
  29. MINOXIDIL [Concomitant]
     Active Substance: MINOXIDIL
  30. PRAVASTATIN SODIUM [Concomitant]
     Active Substance: PRAVASTATIN SODIUM
  31. AZITHROMYCIN [Concomitant]
     Active Substance: AZITHROMYCIN
  32. PERCOCET [Concomitant]
     Active Substance: ACETAMINOPHEN\OXYCODONE HYDROCHLORIDE
  33. VALGANCICLOVIR HYDROCHLORIDE [Concomitant]
     Active Substance: VALGANCICLOVIR HYDROCHLORIDE
  34. PRUCALOPRIDE [Concomitant]
     Active Substance: PRUCALOPRIDE
  35. FLUTICASONE [Concomitant]
     Active Substance: FLUTICASONE
  36. SALMETEROL [Concomitant]
     Active Substance: SALMETEROL
  37. HYDROCORTISONE [Concomitant]
     Active Substance: HYDROCORTISONE

REACTIONS (7)
  - Ulcer [Unknown]
  - Haemorrhage [Unknown]
  - Renal disorder [Unknown]
  - Pneumonia [Unknown]
  - Rib fracture [Unknown]
  - Fall [Unknown]
  - Fractured coccyx [Unknown]

NARRATIVE: CASE EVENT DATE: 20250701
